FAERS Safety Report 4551426-7 (Version None)
Quarter: 2005Q1

REPORT INFORMATION
  Report Type: 
  Country: None (occurrence: None)
  Receive Date: 20050104
  Receipt Date: 20041214
  Transmission Date: 20050727
  Serious: Yes (Hospitalization)
  Sender: FDA-Public Use
  Company Number: 2004-03998

PATIENT
  Age: 68 Year
  Sex: Male

DRUGS (1)
  1. IMMUCYST (BCG- IT (CONNAUGHT)) [Suspect]
     Indication: BLADDER CANCER
     Dosage: 81.0 UG
     Route: 050
     Dates: start: 20041129

REACTIONS (5)
  - BLADDER CANCER RECURRENT [None]
  - DRUG INEFFECTIVE [None]
  - HYPERTONIC BLADDER [None]
  - INTERSTITIAL LUNG DISEASE [None]
  - PYREXIA [None]
